FAERS Safety Report 24179617 (Version 1)
Quarter: 2024Q3

REPORT INFORMATION
  Report Type: Spontaneous
  Country: US (occurrence: US)
  Receive Date: 20240806
  Receipt Date: 20240806
  Transmission Date: 20241017
  Serious: No
  Sender: GALDERMA
  Company Number: US-GALDERMA-US2024010536

PATIENT

DRUGS (10)
  1. PROACTIV MD ADAPALENE ACNE TREATMENT [Suspect]
     Active Substance: ADAPALENE
     Indication: Acne
     Dosage: 1 DOSAGE FORM, APPLIED ON FACE ONCE AT NIGHT PEA SIZE
     Route: 061
     Dates: start: 202402
  2. PROACTIV MD ADAPALENE ACNE TREATMENT [Suspect]
     Active Substance: ADAPALENE
     Indication: Scar
  3. Proactiv MD Ultra Gentle Cleanser [Concomitant]
     Indication: Acne
     Dosage: 1 DOSAGE FORM, APPLIED ON FACE DIME SIZE TWICE A DAY
     Route: 061
     Dates: start: 202402
  4. Proactiv MD Ultra Gentle Cleanser [Concomitant]
     Indication: Scar
  5. COSMETICS [Concomitant]
     Active Substance: COSMETICS
     Indication: Acne
     Dosage: 1 DOSAGE FORM, APPLIED ON FACE DIME SIZE TWICE A DAY
     Route: 061
     Dates: start: 202402
  6. COSMETICS [Concomitant]
     Active Substance: COSMETICS
     Indication: Scar
  7. COSMETICS [Concomitant]
     Active Substance: COSMETICS
     Indication: Acne
     Dosage: 1 DOSAGE FORM, APPLIED ON FACE DIME SIZE TWICE A DAY
     Route: 061
     Dates: start: 202402
  8. COSMETICS [Concomitant]
     Active Substance: COSMETICS
     Indication: Scar
  9. COSMETICS [Concomitant]
     Active Substance: COSMETICS
     Indication: Acne
     Dosage: 1 DOSAGE FORM, APPLIED ON FACE DIME SIZE TWICE A DAY
     Route: 061
     Dates: start: 202402
  10. COSMETICS [Concomitant]
     Active Substance: COSMETICS
     Indication: Scar

REACTIONS (1)
  - Drug ineffective [Unknown]
